FAERS Safety Report 20871279 (Version 1)
Quarter: 2022Q2

REPORT INFORMATION
  Report Type: Spontaneous
  Country: PE (occurrence: PE)
  Receive Date: 20220525
  Receipt Date: 20220525
  Transmission Date: 20220721
  Serious: Yes (Death, Other)
  Sender: FDA-Public Use
  Company Number: PE-ASTELLAS-2022US018537

PATIENT
  Sex: Female

DRUGS (1)
  1. ISAVUCONAZOLE [Suspect]
     Active Substance: ISAVUCONAZOLE
     Indication: Mucormycosis
     Dosage: 2 DF, ONCE DAILY (200 MG LYOPHILIZED POWDER)
     Route: 065
     Dates: start: 20220505

REACTIONS (5)
  - Respiratory failure [Fatal]
  - Septic shock [Fatal]
  - Disseminated mucormycosis [Fatal]
  - Drug ineffective [Fatal]
  - Incorrect dose administered [Unknown]
